FAERS Safety Report 4578702-6 (Version None)
Quarter: 2005Q1

REPORT INFORMATION
  Report Type: 
  Country: None (occurrence: None)
  Receive Date: 20050211
  Receipt Date: 20050131
  Transmission Date: 20050727
  Serious: Yes (Other)
  Sender: FDA-Public Use
  Company Number: GB-ROCHE-394090

PATIENT
  Age: 51 Year
  Sex: Male

DRUGS (6)
  1. NAPROXEN [Suspect]
     Indication: ARTHRITIS
     Route: 048
     Dates: start: 20041231, end: 20050107
  2. PROCHLORPERAZINE [Concomitant]
     Route: 048
  3. CITALOPRAM [Concomitant]
     Route: 048
  4. TELMISARTAN [Concomitant]
     Route: 048
  5. VERAPAMIL [Concomitant]
     Route: 048
  6. CELECOXIB [Concomitant]
     Dates: end: 20041215

REACTIONS (1)
  - ANGINA PECTORIS [None]
